FAERS Safety Report 25646493 (Version 14)
Quarter: 2025Q4

REPORT INFORMATION
  Report Type: Report from Study
  Country: CA (occurrence: CA)
  Receive Date: 20250805
  Receipt Date: 20251231
  Transmission Date: 20260117
  Serious: Yes (Life-Threatening, Hospitalization, Other)
  Sender: PFIZER
  Company Number: CA-PFIZER INC-202500082434

PATIENT
  Age: 55 Year
  Sex: Female
  Weight: 100 kg

DRUGS (11)
  1. IXIFI [Suspect]
     Active Substance: INFLIXIMAB-QBTX
     Indication: Colitis ulcerative
     Dosage: 1300 MG, EVERY 4 WEEKS
     Route: 042
     Dates: start: 20250707
  2. IXIFI [Suspect]
     Active Substance: INFLIXIMAB-QBTX
     Dosage: 1300 MG, AFTER 9 WEEKS AND 4 DAYS (1300 MG, EVERY 4 WEEKS)
     Route: 042
     Dates: start: 20250912
  3. IXIFI [Suspect]
     Active Substance: INFLIXIMAB-QBTX
     Dosage: 1300 MG, 6 WEEKS AND 3 DAYS(6 WEEKS AND 3 DAYS)
     Route: 042
     Dates: start: 20251027
  4. IXIFI [Suspect]
     Active Substance: INFLIXIMAB-QBTX
     Dosage: 1300 MG, AFTER 8 WEEKS (1300 MG, EVERY 4 WEEKS)
     Route: 042
     Dates: start: 20251222
  5. CYMBALTA [Concomitant]
     Active Substance: DULOXETINE HYDROCHLORIDE
     Dosage: UNK
  6. NORVASC [Concomitant]
     Active Substance: AMLODIPINE BESYLATE
     Dosage: UNK
  7. PANTOPRAZOLE SODIUM [Concomitant]
     Active Substance: PANTOPRAZOLE SODIUM
     Dosage: UNK
  8. PERINDOPRIL [Concomitant]
     Active Substance: PERINDOPRIL
     Dosage: UNK
  9. PREDNISONE [Concomitant]
     Active Substance: PREDNISONE
     Dosage: 40 MG, FREQUENCY: UNKNOWN
     Route: 065
     Dates: start: 20231220
  10. PREGABALIN [Concomitant]
     Active Substance: PREGABALIN
     Dosage: UNK
  11. CETIRIZINE HYDROCHLORIDE [Concomitant]
     Active Substance: CETIRIZINE HYDROCHLORIDE
     Dosage: UNK

REACTIONS (11)
  - Staphylococcal bacteraemia [Recovered/Resolved]
  - Immunosuppression [Unknown]
  - Cellulitis [Unknown]
  - Abscess limb [Unknown]
  - Wound [Unknown]
  - Wound complication [Unknown]
  - Pain [Unknown]
  - Off label use [Unknown]
  - Intentional product use issue [Unknown]
  - Off label use [Unknown]
  - Off label use [Unknown]

NARRATIVE: CASE EVENT DATE: 20250101
